FAERS Safety Report 4429140-8 (Version None)
Quarter: 2004Q3

REPORT INFORMATION
  Report Type: 
  Country: None (occurrence: None)
  Receive Date: 20040726
  Receipt Date: 20040326
  Transmission Date: 20050211
  Serious: No
  Sender: FDA-Public Use
  Company Number: USA040361632

PATIENT
  Age: 60 Year
  Sex: Female
  Weight: 45 kg

DRUGS (3)
  1. FORTEO [Suspect]
  2. VITAMIN CAP [Concomitant]
  3. VITAMIN B COMPLEX CAP [Concomitant]

REACTIONS (3)
  - BONE PAIN [None]
  - CONSTIPATION [None]
  - INSOMNIA [None]
